FAERS Safety Report 21916039 (Version 3)
Quarter: 2023Q1

REPORT INFORMATION
  Report Type: Spontaneous
  Country: IN (occurrence: None)
  Receive Date: 20230126
  Receipt Date: 20230210
  Transmission Date: 20230418
  Serious: Yes (Hospitalization)
  Sender: FDA-Public Use
  Company Number: 2023A015269

PATIENT
  Age: 72 Year
  Sex: Male

DRUGS (20)
  1. FASENRA [Suspect]
     Active Substance: BENRALIZUMAB
     Indication: Asthma
     Route: 058
     Dates: start: 20211218
  2. FORENZA [Concomitant]
     Dosage: 325MG 1-0-1 X 5 DAYS
  3. PAN [Concomitant]
     Dosage: 40MG 1-0-0 X 10 DAYS (? HOUR BEFORE FOOD)
  4. XYKAA [Concomitant]
     Indication: Pyrexia
     Dosage: 1 GM
  5. XYKAA [Concomitant]
     Indication: Pain
     Dosage: 1 GM
  6. DUPHALAC [Concomitant]
     Active Substance: LACTULOSE
     Indication: Constipation
     Dosage: 145ML 0-0-1 X 5 DAYS
  7. LEVOTHYROXINE [Concomitant]
     Active Substance: LEVOTHYROXINE
     Dosage: 50MCG 1-0-0 X
  8. PREDNISOLONE [Concomitant]
     Active Substance: PREDNISOLONE
     Dosage: 40MG 1-0-1 (AFTER FOOD) X 2 DAYS,
  9. PREDNISOLONE [Concomitant]
     Active Substance: PREDNISOLONE
     Dosage: 40MG 1-0-0 (AFTER FOOD) X 3 DAYS,
  10. PREDNISOLONE [Concomitant]
     Active Substance: PREDNISOLONE
     Dosage: 20MG 1-0-0 (AFTER FOOD) X 3 DAYS
  11. PREDNISOLONE [Concomitant]
     Active Substance: PREDNISOLONE
     Dosage: 10MG 1-0-0 (AFTER FOOD) X 3 DAYS
  12. ASPIRIN [Concomitant]
     Active Substance: ASPIRIN
     Dosage: 75MG 0-1-0 X
  13. MONDESLOR [Concomitant]
     Dosage: 10MG 0-0-1 X 10 DAYS
  14. VENUSIA [Concomitant]
     Dosage: 1-0-1 X 7 DAYS
  15. ANXIT [Concomitant]
     Dosage: 0.5MG 0-0-1 X 5 DAYS
  16. CALCIUM CARBONATE\CHOLECALCIFEROL [Concomitant]
     Active Substance: CALCIUM CARBONATE\CHOLECALCIFEROL
     Dosage: 500MG 1-0-0
  17. VERTIN [Concomitant]
     Dosage: 8MG 1-1-1 X 1 WEEK
  18. OROTEX [Concomitant]
     Dosage: 2-0-2 X 5 DAYS
  19. LEVOLIN [Concomitant]
     Dosage: 0.63MG 1-1-1 X 1 WEEK, THEN SOS
  20. DIFIZMA [Concomitant]
     Dosage: DPI 1-0-0 (GARGLE AFTER USE) X TO CONTINUE (WITH NIV 12/6, BACK UP 18/MIN CONTINUOUS OVERNIGHT RE...

REACTIONS (6)
  - Productive cough [Recovered/Resolved]
  - Dyspnoea [Recovered/Resolved]
  - Wheezing [Recovered/Resolved]
  - Oxygen saturation decreased [Recovered/Resolved]
  - Respiratory failure [Recovering/Resolving]
  - Pyrexia [Recovered/Resolved]

NARRATIVE: CASE EVENT DATE: 20230101
